FAERS Safety Report 16823273 (Version 1)
Quarter: 2019Q3

REPORT INFORMATION
  Report Type: Report from Study
  Country: US (occurrence: US)
  Receive Date: 20190918
  Receipt Date: 20190918
  Transmission Date: 20191005
  Serious: Yes (Hospitalization)
  Sender: FDA-Public Use
  Company Number: US-MYLANLABS-2019M1087673

PATIENT
  Age: 64 Year
  Sex: Male

DRUGS (1)
  1. METHOTREXATE. [Suspect]
     Active Substance: METHOTREXATE
     Indication: RHEUMATOID ARTHRITIS
     Dosage: HAD BEEN RECEIVING METHOTREXATE 12.5MG PILLS DAILY INSTEAD OF WEEKLY FOR 8 DAYS (TOTAL DOSE 100MG)
     Route: 048

REACTIONS (4)
  - Stomatitis [Unknown]
  - Accidental overdose [Unknown]
  - Dysphagia [Unknown]
  - Inappropriate schedule of product administration [Unknown]
